FAERS Safety Report 8938462 (Version 2)
Quarter: 2013Q2

REPORT INFORMATION
  Report Type: Spontaneous
  Country: DK (occurrence: DK)
  Receive Date: 20121203
  Receipt Date: 20130625
  Transmission Date: 20140414
  Serious: Yes (Other)
  Sender: FDA-Public Use
  Company Number: PHHY2012DK109860

PATIENT
  Age: 66 Year
  Sex: Female

DRUGS (6)
  1. ZOMETA [Suspect]
     Indication: METASTASES TO BONE
     Dosage: 4 MG \ 100 ML EVERY 4TH WEEK
     Route: 042
     Dates: start: 2007, end: 20111021
  2. TODOLAC [Concomitant]
     Indication: PAIN
     Dosage: UNK UKN, UNK
     Dates: start: 20090624
  3. DUROGESIC [Concomitant]
     Indication: PAIN
     Dosage: DEPOTPLASTER
     Route: 062
     Dates: start: 20100419
  4. PANODIL [Concomitant]
     Indication: PAIN
     Dosage: STYRKE: 500 MG
     Dates: start: 20090624
  5. CATAPRES//CLONIDINE HYDROCHLORIDE [Concomitant]
     Indication: MIGRAINE PROPHYLAXIS
     Dates: start: 20090722
  6. AMITRIPTYLIN [Concomitant]
     Indication: PAIN
     Dosage: 20 MG TIL NAT
     Dates: start: 20090817

REACTIONS (4)
  - Osteonecrosis of jaw [Not Recovered/Not Resolved]
  - Exposed bone in jaw [Unknown]
  - Primary sequestrum [Unknown]
  - Paraesthesia oral [Unknown]
